FAERS Safety Report 16543832 (Version 1)
Quarter: 2019Q3

REPORT INFORMATION
  Report Type: Spontaneous
  Country: TR (occurrence: TR)
  Receive Date: 20190709
  Receipt Date: 20190709
  Transmission Date: 20191004
  Serious: Yes (Hospitalization, Other)
  Sender: FDA-Public Use
  Company Number: TR-PFIZER INC-2019286354

PATIENT
  Age: 59 Year
  Sex: Male

DRUGS (2)
  1. SUTENT [Suspect]
     Active Substance: SUNITINIB MALATE
     Indication: RENAL CELL CARCINOMA
     Dosage: CYCLIC 2 WEEKS ON 1 WEEK OFF
     Dates: start: 20171019
  2. SUTENT [Suspect]
     Active Substance: SUNITINIB MALATE
     Dosage: UNK
     Dates: start: 20190529

REACTIONS (13)
  - Thrombocytopenia [Unknown]
  - Biliary dilatation [Unknown]
  - Ocular icterus [Unknown]
  - Blood thyroid stimulating hormone increased [Unknown]
  - Off label use [Unknown]
  - Chromaturia [Unknown]
  - Yellow skin [Unknown]
  - Bile duct obstruction [Unknown]
  - Hypertension [Unknown]
  - Blood creatinine increased [Recovering/Resolving]
  - Bilirubin conjugated increased [Unknown]
  - Gallbladder oedema [Unknown]
  - Blood bilirubin increased [Unknown]

NARRATIVE: CASE EVENT DATE: 2017
